FAERS Safety Report 4591805-5 (Version None)
Quarter: 2005Q1

REPORT INFORMATION
  Report Type: 
  Country: None (occurrence: None)
  Receive Date: 20050222
  Receipt Date: 20050214
  Transmission Date: 20050727
  Serious: Yes (Life-Threatening)
  Sender: FDA-Public Use
  Company Number: 200411029BVD

PATIENT
  Age: 55 Year
  Sex: Male
  Weight: 92 kg

DRUGS (2)
  1. LIPOBAY (CERIVASTATIN SODIUM) [Suspect]
     Indication: HYPERCHOLESTEROLAEMIA
     Dosage: 0.3 MG, TOTAL DAILY, ORAL
     Route: 048
     Dates: start: 19990114, end: 19990224
  2. LIPICOL [Concomitant]

REACTIONS (7)
  - BIOPSY MUSCLE ABNORMAL [None]
  - DYSPNOEA EXERTIONAL [None]
  - MUSCLE ATROPHY [None]
  - MUSCLE NECROSIS [None]
  - MYOPATHY [None]
  - POLYMYALGIA [None]
  - POLYMYOSITIS [None]
